FAERS Safety Report 22160272 (Version 1)
Quarter: 2023Q1

REPORT INFORMATION
  Report Type: Spontaneous
  Country: US (occurrence: None)
  Receive Date: 20230330
  Receipt Date: 20230330
  Transmission Date: 20230418
  Serious: Yes (Disabling)
  Sender: FDA-Public Use
  Company Number: None

PATIENT
  Age: 46 Year
  Sex: Female
  Weight: 63 kg

DRUGS (17)
  1. TRULICITY [Suspect]
     Active Substance: DULAGLUTIDE
     Indication: Type 2 diabetes mellitus
     Dosage: OTHER STRENGTH : 1.5 MG/0.5 ML;?OTHER QUANTITY : 1 INJECTION(S);?OTHER FREQUENCY : ONE TIME A WEEK;?
     Route: 058
  2. TRULICITY [Concomitant]
     Active Substance: DULAGLUTIDE
  3. HUMALOG [Concomitant]
     Active Substance: INSULIN LISPRO
  4. EXEMESTANE [Concomitant]
     Active Substance: EXEMESTANE
  5. PANTOPRAZOLE [Concomitant]
     Active Substance: PANTOPRAZOLE
  6. LYRICA [Concomitant]
     Active Substance: PREGABALIN
  7. VENLAFAXINE [Concomitant]
     Active Substance: VENLAFAXINE HYDROCHLORIDE
  8. WELLBUTRIN [Concomitant]
     Active Substance: BUPROPION HYDROCHLORIDE
  9. TOPAMAX [Concomitant]
     Active Substance: TOPIRAMATE
  10. LOTRONEX [Concomitant]
     Active Substance: ALOSETRON HYDROCHLORIDE
  11. ALLEGRA [Concomitant]
     Active Substance: FEXOFENADINE HYDROCHLORIDE
  12. FENOFIBRATE [Concomitant]
     Active Substance: FENOFIBRATE
  13. LIPITOR [Concomitant]
     Active Substance: ATORVASTATIN CALCIUM
  14. HYOSCYAMINE [Concomitant]
     Active Substance: HYOSCYAMINE
  15. ALBUTEROL [Concomitant]
     Active Substance: ALBUTEROL
  16. ZOFRAN [Concomitant]
     Active Substance: ONDANSETRON HYDROCHLORIDE
  17. Vitamin D supplement 5000 IU [Concomitant]

REACTIONS (3)
  - Diarrhoea [None]
  - Therapy change [None]
  - Therapy change [None]

NARRATIVE: CASE EVENT DATE: 20230123
